FAERS Safety Report 5806407-X (Version None)
Quarter: 2008Q3

REPORT INFORMATION
  Report Type: 
  Country: None (occurrence: None)
  Receive Date: 20080710
  Receipt Date: 20080630
  Transmission Date: 20090109
  Serious: Yes (Hospitalization, Disabling)
  Sender: FDA-Public Use
  Company Number: US-SANOFI-SYNTHELABO-A03200802587

PATIENT
  Sex: Female

DRUGS (4)
  1. IMITREX [Concomitant]
     Indication: DRUG USE FOR UNKNOWN INDICATION
     Dosage: UNK
     Route: 048
  2. DARVOCET [Concomitant]
     Indication: DRUG USE FOR UNKNOWN INDICATION
     Dosage: UNK
     Route: 048
  3. NADOLOL [Concomitant]
     Indication: DRUG USE FOR UNKNOWN INDICATION
     Dosage: UNK
     Route: 048
  4. AMBIEN [Suspect]
     Indication: INSOMNIA
     Dosage: UNK
     Route: 048
     Dates: start: 20070101, end: 20080212

REACTIONS (8)
  - AMNESIA [None]
  - ANKLE FRACTURE [None]
  - BLOOD PRESSURE SYSTOLIC DECREASED [None]
  - EMOTIONAL DISTRESS [None]
  - FALL [None]
  - JOINT SWELLING [None]
  - PAIN [None]
  - SOMNAMBULISM [None]
